FAERS Safety Report 9677853 (Version 1)
Quarter: 2013Q4

REPORT INFORMATION
  Report Type: Spontaneous
  Country: US (occurrence: None)
  Receive Date: 20131107
  Receipt Date: 20131107
  Transmission Date: 20140711
  Serious: Yes (Life-Threatening, Hospitalization)
  Sender: FDA-Public Use
  Company Number: None

PATIENT
  Age: 55 Year
  Sex: Female
  Weight: 92.7 kg

DRUGS (11)
  1. EPZICOM [Suspect]
     Indication: HIV INFECTION
     Route: 048
     Dates: end: 20131103
  2. PERCOCET [Concomitant]
  3. COMBIVENT [Concomitant]
  4. PROAIR HFA [Concomitant]
  5. ALPRAZOLAM [Concomitant]
  6. LIPITOR [Concomitant]
  7. FENOFIBRATE [Concomitant]
  8. ADVAIR [Concomitant]
  9. LASIX [Concomitant]
  10. GABAPENTIN [Concomitant]
  11. HYDROCHLOROTHIAZIDE LISINOPRIL [Concomitant]

REACTIONS (10)
  - Renal failure acute [None]
  - Rhabdomyolysis [None]
  - Encephalopathy [None]
  - Myoclonus [None]
  - Pneumonia [None]
  - Acute respiratory failure [None]
  - Respiratory acidosis [None]
  - Metabolic acidosis [None]
  - Anaemia of chronic disease [None]
  - N-terminal prohormone brain natriuretic peptide increased [None]
